FAERS Safety Report 14821482 (Version 1)
Quarter: 2018Q2

REPORT INFORMATION
  Report Type: Spontaneous
  Country: RU (occurrence: RU)
  Receive Date: 20180427
  Receipt Date: 20180427
  Transmission Date: 20180711
  Serious: Yes (Death, Other)
  Sender: FDA-Public Use
  Company Number: RU-SA-2018SA115290

PATIENT

DRUGS (3)
  1. FLUDARABINE [Suspect]
     Active Substance: FLUDARABINE PHOSPHATE
     Indication: BONE MARROW TRANSPLANT
     Dosage: DOSE: 120 MG / M2 / 2 MG / KG / 40 MG / M2
     Route: 065
  2. ALKERAN [Suspect]
     Active Substance: MELPHALAN
     Indication: BONE MARROW TRANSPLANT
     Dosage: DOSE :120 MG / M2 / 2 MG / KG / 40 MG / M2
     Route: 065
  3. THYMOGLOBULIN [Suspect]
     Active Substance: LAPINE T-LYMPHOCYTE IMMUNE GLOBULIN
     Indication: BONE MARROW TRANSPLANT
     Dosage: DOSE:120 MG / M2 / 2 MG / KG / 40 MG/ M2
     Route: 042

REACTIONS (2)
  - Transplant rejection [Fatal]
  - Cardiotoxicity [Fatal]
